FAERS Safety Report 13129385 (Version 2)
Quarter: 2017Q1

REPORT INFORMATION
  Report Type: Spontaneous
  Country: GB (occurrence: GB)
  Receive Date: 20170119
  Receipt Date: 20170119
  Transmission Date: 20170428
  Serious: Yes (Hospitalization)
  Sender: FDA-Public Use
  Company Number: GB-CIPLA LTD.-2017GB01020

PATIENT
  Age: 48 Year

DRUGS (7)
  1. SERTRALINE [Suspect]
     Active Substance: SERTRALINE HYDROCHLORIDE
     Dosage: 150 MG, QD
     Route: 065
  2. AMISULPRIDE [Concomitant]
     Active Substance: AMISULPRIDE
     Dosage: 200 MG, QD AT NIGHT
     Route: 065
  3. VITAMIN B COMPOUND STRONG [Concomitant]
     Dosage: 1 DF, QD EVERY MORNING.
     Route: 065
  4. CLOPIDOGREL [Concomitant]
     Active Substance: CLOPIDOGREL BISULFATE
     Dosage: 75 MG, QD MORNING
     Route: 065
  5. PROCYCLIDINE [Concomitant]
     Active Substance: PROCYCLIDINE
     Dosage: 5 MG, BID MORNING AND NIGHT.
     Route: 065
  6. SIMVASTATIN. [Concomitant]
     Active Substance: SIMVASTATIN
     Dosage: 40 MG, QD AT NIGHT.
     Route: 065
  7. THIAMINE. [Concomitant]
     Active Substance: THIAMINE
     Dosage: 50 MG, QD EVERY MORNING.
     Route: 065

REACTIONS (3)
  - Confusional state [Unknown]
  - Lethargy [Unknown]
  - Hyponatraemia [Recovered/Resolved]
